FAERS Safety Report 19063474 (Version 2)
Quarter: 2021Q2

REPORT INFORMATION
  Report Type: Other
  Country: US (occurrence: US)
  Receive Date: 20210326
  Receipt Date: 20210427
  Transmission Date: 20210717
  Serious: Yes (Hospitalization, Other)
  Sender: FDA-Public Use
  Company Number: US-AMAG PHARMACEUTICALS, INC.-AMAG202101096

PATIENT
  Age: 0 Day
  Sex: Female
  Weight: 1.43 kg

DRUGS (1)
  1. MAKENA [Suspect]
     Active Substance: HYDROXYPROGESTERONE CAPROATE
     Indication: FOETAL EXPOSURE DURING PREGNANCY
     Dosage: 275MG/1.1ML
     Route: 064
     Dates: start: 20201124

REACTIONS (3)
  - Premature baby [Unknown]
  - Nonreassuring foetal heart rate pattern [Unknown]
  - Foetal malpresentation [Unknown]

NARRATIVE: CASE EVENT DATE: 20210308
